FAERS Safety Report 18162478 (Version 1)
Quarter: 2020Q3

REPORT INFORMATION
  Report Type: Report from Study
  Country: US (occurrence: US)
  Receive Date: 20200818
  Receipt Date: 20200818
  Transmission Date: 20201103
  Serious: Yes (Hospitalization)
  Sender: FDA-Public Use
  Company Number: US-EISAI MEDICAL RESEARCH-EC-2020-072138

PATIENT
  Age: 65 Year
  Sex: Male

DRUGS (1)
  1. LENVIMA [Suspect]
     Active Substance: LENVATINIB
     Indication: HEPATOCELLULAR CARCINOMA
     Route: 048
     Dates: start: 202001, end: 202007

REACTIONS (8)
  - Thrombosis [Unknown]
  - Blood pressure increased [Recovering/Resolving]
  - Metastases to lung [Unknown]
  - Metastases to pelvis [Unknown]
  - Hypothyroidism [Unknown]
  - Fatigue [Unknown]
  - Peritonitis [Unknown]
  - Tumour marker increased [Unknown]

NARRATIVE: CASE EVENT DATE: 2020
